FAERS Safety Report 9525485 (Version 2)
Quarter: 2013Q4

REPORT INFORMATION
  Report Type: Not Available
  Country: DE (occurrence: DE)
  Receive Date: 20130916
  Receipt Date: 20131122
  Transmission Date: 20140711
  Serious: Yes (Other)
  Sender: FDA-Public Use
  Company Number: DE-PURDUE-DEU-2013-0012339

PATIENT
  Sex: Female

DRUGS (1)
  1. OXYGESIC [Suspect]
     Indication: PAIN
     Route: 048

REACTIONS (4)
  - Anaphylactic shock [Unknown]
  - Dyspnoea [Unknown]
  - Urticaria [Unknown]
  - Urticaria [Unknown]
